FAERS Safety Report 16657393 (Version 1)
Quarter: 2019Q3

REPORT INFORMATION
  Report Type: Spontaneous
  Country: US (occurrence: US)
  Receive Date: 20190801
  Receipt Date: 20190801
  Transmission Date: 20191004
  Serious: Yes (Other)
  Sender: FDA-Public Use
  Company Number: US-MALLINCKRODT-T201903770

PATIENT
  Age: 40 Year
  Sex: Female
  Weight: 54 kg

DRUGS (19)
  1. UVADEX [Suspect]
     Active Substance: METHOXSALEN
     Dosage: UNK, EXTRACORPOREAL
     Route: 050
     Dates: start: 2019, end: 2019
  2. SLOW-MAG [Concomitant]
     Active Substance: MAGNESIUM CHLORIDE
     Indication: PRODUCT USED FOR UNKNOWN INDICATION
     Dosage: 71.5 MILLIGRAM, 2 TABLET, QD
  3. TACROLIMUS. [Concomitant]
     Active Substance: TACROLIMUS
     Indication: PRODUCT USED FOR UNKNOWN INDICATION
     Dosage: 3 MILLIGRAM, 3 CAPSULE, BID
     Route: 048
  4. UVADEX [Suspect]
     Active Substance: METHOXSALEN
     Dosage: TWO TIMES A WEEK, EVERY OTHER WEEK, FOR 8 WEEKS, EXTRACORPOREAL
     Route: 050
     Dates: start: 2019, end: 2019
  5. MULTIVITAMIN [Concomitant]
     Active Substance: VITAMINS
     Indication: PRODUCT USED FOR UNKNOWN INDICATION
     Dosage: 1 TABLET, EVERYDAY
     Route: 048
  6. ADVAIR HFA [Concomitant]
     Active Substance: FLUTICASONE PROPIONATE\SALMETEROL XINAFOATE
     Indication: PRODUCT USED FOR UNKNOWN INDICATION
     Dosage: 250/50 MICROGRAM, 1 PUFF, BID, INHALATION
     Route: 050
  7. BACTRIM DS [Concomitant]
     Active Substance: SULFAMETHOXAZOLE\TRIMETHOPRIM
     Indication: PRODUCT USED FOR UNKNOWN INDICATION
     Dosage: 800/160 MILLIGRAM, 1 TABLET, (MONDAY, WEDNESDAY, FRIDAY)
     Route: 048
  8. CALCIUM + VITAMIN D [CALCIUM;COLECALCIFEROL] [Concomitant]
     Indication: PRODUCT USED FOR UNKNOWN INDICATION
     Dosage: 500/125 MILLIGRAM, 1 TABLET, BID
     Route: 048
  9. PREDNISONE. [Concomitant]
     Active Substance: PREDNISONE
     Indication: PRODUCT USED FOR UNKNOWN INDICATION
     Dosage: 5 MILLIGRAM, 1 TABLET, QD
     Route: 048
  10. ZOFRAN [Concomitant]
     Active Substance: ONDANSETRON HYDROCHLORIDE
     Indication: PRODUCT USED FOR UNKNOWN INDICATION
     Dosage: 4 MILLIGRAM, PRN
     Route: 042
  11. UVADEX [Suspect]
     Active Substance: METHOXSALEN
     Indication: PRODUCT USED FOR UNKNOWN INDICATION
     Dosage: TWO TIMES A WEEK FOR 8 WEEKS, EXTRACORPOREAL
     Route: 050
     Dates: start: 20190109, end: 2019
  12. UVADEX [Suspect]
     Active Substance: METHOXSALEN
     Dosage: TWO TIMES A WEEK FOR 8 WEEKS, EXTRACORPOREAL
     Route: 050
     Dates: start: 2019, end: 2019
  13. UVADEX [Suspect]
     Active Substance: METHOXSALEN
     Dosage: UNK, EXTRACORPOREAL
     Route: 050
     Dates: start: 2019, end: 2019
  14. AMBIEN [Concomitant]
     Active Substance: ZOLPIDEM TARTRATE
     Indication: PRODUCT USED FOR UNKNOWN INDICATION
     Dosage: 10 MILLIGRAM, 1 TABLET, QHS (AS NEEDED)
     Route: 048
  15. MYFORTIC [Concomitant]
     Active Substance: MYCOPHENOLATE SODIUM
     Indication: PRODUCT USED FOR UNKNOWN INDICATION
     Dosage: 360 MILLIGRAM, 2 TABLETS, BID
     Route: 048
  16. ZOFRAN [Concomitant]
     Active Substance: ONDANSETRON HYDROCHLORIDE
     Dosage: 4 MILLIGRAM, 1 TAB, EVERY 8 HOURS (PRN)
     Route: 048
  17. ACDA [Concomitant]
     Indication: ANTICOAGULANT THERAPY
     Dosage: UNK
     Route: 065
     Dates: start: 2019
  18. AZITHROMYCIN ANHYDROUS. [Concomitant]
     Active Substance: AZITHROMYCIN ANHYDROUS
     Indication: PRODUCT USED FOR UNKNOWN INDICATION
     Dosage: 250 MILLIGRAM, TABLET, (MONDAY, WEDNESDAY, FRIDAY)
     Route: 048
  19. SINGULAIR [Concomitant]
     Active Substance: MONTELUKAST SODIUM
     Indication: PRODUCT USED FOR UNKNOWN INDICATION
     Dosage: 10 MILLIGRAM, QD (NIGHT)
     Route: 048

REACTIONS (1)
  - Iron deficiency anaemia [Recovered/Resolved]

NARRATIVE: CASE EVENT DATE: 2019
